FAERS Safety Report 23699912 (Version 2)
Quarter: 2024Q4

REPORT INFORMATION
  Report Type: Spontaneous
  Country: US (occurrence: US)
  Receive Date: 20240403
  Receipt Date: 20241203
  Transmission Date: 20250115
  Serious: No
  Sender: NOVARTIS
  Company Number: US-002147023-NVSC2024US070507

PATIENT
  Sex: Female

DRUGS (1)
  1. NETSPOT [Suspect]
     Active Substance: DOTATATE GALLIUM GA-68
     Indication: Product used for unknown indication
     Dosage: 5.4 MCI IN SINGLE SYRINGE
     Route: 065

REACTIONS (1)
  - Wrong patient received product [Unknown]
